FAERS Safety Report 8283381-0 (Version None)
Quarter: 2012Q2

REPORT INFORMATION
  Report Type: 
  Country: None (occurrence: None)
  Receive Date: 20120413
  Receipt Date: 20120402
  Transmission Date: 20120825
  Serious: Yes (Other)
  Sender: FDA-Public Use
  Company Number: TR-MILLENNIUM PHARMACEUTICALS, INC.-2011-05928

PATIENT

DRUGS (8)
  1. DEXAMETHASONE [Concomitant]
     Indication: MULTIPLE MYELOMA
     Dosage: 40 MG, UNK
     Dates: start: 20110419
  2. ONDANSETRON [Concomitant]
     Dosage: UNK
  3. ALLOPURINOL [Concomitant]
  4. GRANISETRON [Concomitant]
     Dosage: 3 MG, UNK
  5. VELCADE [Suspect]
     Indication: MULTIPLE MYELOMA
     Dosage: 2.2 MG, UNK
     Route: 042
     Dates: start: 20110419, end: 20110901
  6. ZOLEDRONOC ACID [Concomitant]
     Indication: MULTIPLE MYELOMA
     Dosage: 4 MG, UNK
     Dates: start: 20110419
  7. GRANISETRON [Concomitant]
     Dosage: 1 UNK, UNK
  8. GRANISETRON [Concomitant]
     Dosage: 2 UNK, UNK

REACTIONS (2)
  - DIPLOPIA [None]
  - NERVE INJURY [None]
